FAERS Safety Report 20205966 (Version 1)
Quarter: 2021Q4

REPORT INFORMATION
  Report Type: Spontaneous
  Country: US (occurrence: None)
  Receive Date: 20211217
  Receipt Date: 20211217
  Transmission Date: 20220304
  Serious: No
  Sender: FDA-Public Use
  Company Number: None

PATIENT
  Age: 81 Year
  Sex: Male

DRUGS (1)
  1. JAKAFI [Suspect]
     Active Substance: RUXOLITINIB
     Dosage: OTHER FREQUENCY : 1CAP ALT 2CAPS;?
     Route: 048

REACTIONS (1)
  - Gout [None]

NARRATIVE: CASE EVENT DATE: 20211213
